FAERS Safety Report 5578992-7 (Version None)
Quarter: 2007Q4

REPORT INFORMATION
  Report Type: 
  Country: None (occurrence: None)
  Receive Date: 20071228
  Receipt Date: 20071214
  Transmission Date: 20080405
  Serious: Yes (Hospitalization)
  Sender: FDA-Public Use
  Company Number: 2007-05774

PATIENT
  Age: 51 Year
  Sex: Female
  Weight: 83.9 kg

DRUGS (15)
  1. LORAZEPAM [Suspect]
     Indication: SLEEP DISORDER
  2. LYRICA [Suspect]
     Indication: FIBROMYALGIA
     Dosage: 50 MG, DAILY, INTRAMUSCULAR
     Route: 030
     Dates: start: 20070101
  3. CORTISONE ACETATE [Suspect]
     Indication: FIBROMYALGIA
     Dosage: INTRAMUSCULAR
     Route: 030
     Dates: start: 20070101, end: 20070101
  4. ZETIA [Concomitant]
  5. CYMBALTA [Concomitant]
  6. TIZANIDINE HCL [Concomitant]
  7. OMEPRAZOLE [Concomitant]
  8. ROZEREM [Concomitant]
  9. AMBIEN [Concomitant]
  10. LUNESTA [Concomitant]
  11. LISINOPRIL AND HYDROCHLOROTHIAZIDE [Concomitant]
  12. ETODOLAC [Concomitant]
  13. TRAMADOL HCL [Concomitant]
  14. TALWIN [Concomitant]
  15. DEMEROL [Concomitant]

REACTIONS (17)
  - ABNORMAL DREAMS [None]
  - COLONOSCOPY ABNORMAL [None]
  - DISORIENTATION [None]
  - DRUG INTERACTION [None]
  - FIBROMYALGIA [None]
  - GASTRIC INFECTION [None]
  - IMPAIRED DRIVING ABILITY [None]
  - NAUSEA [None]
  - OEDEMA PERIPHERAL [None]
  - PAIN [None]
  - POLYP [None]
  - RESTLESS LEGS SYNDROME [None]
  - ULCER [None]
  - VISION BLURRED [None]
  - VOMITING [None]
  - WEIGHT DECREASED [None]
  - WEIGHT INCREASED [None]
